FAERS Safety Report 15119550 (Version 1)
Quarter: 2018Q3

REPORT INFORMATION
  Report Type: Spontaneous
  Country: US (occurrence: US)
  Receive Date: 20180709
  Receipt Date: 20180709
  Transmission Date: 20181010
  Serious: No
  Sender: FDA-Public Use
  Company Number: US-PFIZER INC-2018274463

PATIENT
  Age: 39 Year
  Sex: Female

DRUGS (1)
  1. IBRANCE [Suspect]
     Active Substance: PALBOCICLIB
     Indication: BREAST CANCER FEMALE
     Dosage: 125 MG, CYCLIC[TAKE 1 CAPSULE BY MOUTH  DAILY FOR 21 DAYS THEN 7 DAYS OFF]
     Route: 048
     Dates: start: 201806

REACTIONS (1)
  - Fatigue [Unknown]
